FAERS Safety Report 9504014 (Version 3)
Quarter: 2013Q3

REPORT INFORMATION
  Report Type: Spontaneous
  Country: IT (occurrence: IT)
  Receive Date: 20130906
  Receipt Date: 20130916
  Transmission Date: 20140515
  Serious: Yes (Other)
  Sender: FDA-Public Use
  Company Number: IT-PFIZER INC-2013257654

PATIENT
  Age: 78 Year
  Sex: Female

DRUGS (8)
  1. ALPRAZOLAM [Suspect]
     Indication: ANXIETY
     Dosage: 1 MG, TOTAL
     Route: 048
     Dates: start: 20130823, end: 20130823
  2. PRISMA [Concomitant]
     Dosage: 50 MG, UNK
  3. EXELON [Concomitant]
     Dosage: 9.5 MG/24H, UNK
  4. LYRICA [Concomitant]
     Dosage: 75 MG, UNK
  5. TAREG [Concomitant]
     Dosage: 160 MG, UNK
  6. LANSOPRAZOLE [Concomitant]
     Dosage: UNK
  7. METFORMIN [Concomitant]
     Dosage: UNK
  8. URSODEOXYCHOLIC ACID [Concomitant]
     Dosage: UNK

REACTIONS (5)
  - Fall [Unknown]
  - Confusional state [Recovering/Resolving]
  - Head injury [Recovering/Resolving]
  - Sudden onset of sleep [Unknown]
  - Hypoaesthesia [Unknown]
